FAERS Safety Report 16201130 (Version 1)
Quarter: 2019Q2

REPORT INFORMATION
  Report Type: Spontaneous
  Country: FR (occurrence: FR)
  Receive Date: 20190416
  Receipt Date: 20190416
  Transmission Date: 20190711
  Serious: Yes (Other)
  Sender: FDA-Public Use
  Company Number: FR-ZYDUS-035737

PATIENT
  Age: 20 Year
  Sex: Male

DRUGS (6)
  1. OMEPRAZOLE. [Suspect]
     Active Substance: OMEPRAZOLE
     Indication: PROPHYLAXIS AGAINST GASTROINTESTINAL ULCER
     Route: 048
     Dates: start: 20190315, end: 20190318
  2. FYCOMPA [Interacting]
     Active Substance: PERAMPANEL
     Indication: EPILEPSY
     Route: 048
  3. LAMOTRIGINE. [Interacting]
     Active Substance: LAMOTRIGINE
     Indication: EPILEPSY
     Route: 048
  4. IBUPROFEN. [Interacting]
     Active Substance: IBUPROFEN
     Indication: GAIT DISTURBANCE
     Route: 048
     Dates: start: 20190315, end: 20190318
  5. NEOMYCIN SULFATE/POLYMYXIN B SULFATE/TIXOCORTOL PIVALATE [Interacting]
     Active Substance: NEOMYCIN\POLYMYXIN B\TIXOCORTOL
     Indication: RHINORRHOEA
     Route: 055
     Dates: start: 20190315, end: 20190318
  6. LACTITOL [Interacting]
     Active Substance: LACTITOL
     Indication: CONSTIPATION
     Route: 048
     Dates: start: 20190315, end: 20190318

REACTIONS (2)
  - Drug ineffective [Recovered/Resolved]
  - Seizure [Recovered/Resolved]

NARRATIVE: CASE EVENT DATE: 20190318
